FAERS Safety Report 9385149 (Version 1)
Quarter: 2013Q3

REPORT INFORMATION
  Report Type: Spontaneous
  Country: PH (occurrence: PH)
  Receive Date: 20130705
  Receipt Date: 20130705
  Transmission Date: 20140515
  Serious: Yes (Death, Hospitalization)
  Sender: FDA-Public Use
  Company Number: PH-BAXTER-2013BAX025551

PATIENT
  Sex: Male

DRUGS (1)
  1. DIANEAL PD2 WITH 1.5% DEXTROSE [Suspect]
     Indication: PERITONEAL DIALYSIS
     Route: 033
     Dates: start: 201101, end: 20130627

REACTIONS (3)
  - Cerebrovascular disorder [Fatal]
  - Cerebral infarction [Fatal]
  - Diabetic nephropathy [Fatal]
